FAERS Safety Report 5632605-4 (Version None)
Quarter: 2008Q1

REPORT INFORMATION
  Report Type: 
  Country: None (occurrence: None)
  Receive Date: 20080220
  Receipt Date: 20080208
  Transmission Date: 20080703
  Serious: Yes (Other)
  Sender: FDA-Public Use
  Company Number: CA-GENENTECH-251384

PATIENT
  Sex: Female
  Weight: 79.5 kg

DRUGS (1)
  1. RITUXAN [Suspect]
     Indication: RHEUMATOID ARTHRITIS
     Dosage: UNK, Q2W
     Dates: start: 20070802, end: 20070815

REACTIONS (2)
  - CHILLS [None]
  - HYPERHIDROSIS [None]
